FAERS Safety Report 9320296 (Version 1)
Quarter: 2013Q2

REPORT INFORMATION
  Report Type: Spontaneous
  Country: CA (occurrence: CA)
  Receive Date: 20130530
  Receipt Date: 20130530
  Transmission Date: 20140414
  Serious: Yes (Hospitalization)
  Sender: FDA-Public Use
  Company Number: CA-009507513-1304CAN007483

PATIENT
  Sex: Female

DRUGS (3)
  1. VICTRELIS [Suspect]
     Indication: HEPATITIS C
     Dosage: 800 MG, TID
     Dates: end: 20130521
  2. PEGASYS [Suspect]
     Indication: HEPATITIS C
     Dosage: 180 MG, QW
     Route: 058
     Dates: start: 20121122, end: 20130521
  3. RIBAVIRIN [Suspect]
     Indication: HEPATITIS C
     Dosage: 1000 MG, QD
     Route: 048
     Dates: end: 20130521

REACTIONS (2)
  - Haemoglobin decreased [Not Recovered/Not Resolved]
  - Dyspnoea [Not Recovered/Not Resolved]
